FAERS Safety Report 19825291 (Version 2)
Quarter: 2021Q3

REPORT INFORMATION
  Report Type: Spontaneous
  Country: SG (occurrence: SG)
  Receive Date: 20210914
  Receipt Date: 20210914
  Transmission Date: 20211014
  Serious: Yes (Hospitalization)
  Sender: FDA-Public Use
  Company Number: SG-DRREDDYS-SPO/SIN/21/0139934

PATIENT
  Age: 25 Year
  Sex: Female
  Weight: 53.5 kg

DRUGS (5)
  1. PREGABALIN. [Suspect]
     Active Substance: PREGABALIN
     Indication: PRODUCT USED FOR UNKNOWN INDICATION
     Dosage: 14 CAPSULES OF PREGABALIN 25 MG (350 MG)
  2. PARACETAMOL 500MG [Interacting]
     Active Substance: ACETAMINOPHEN
     Indication: PRODUCT USED FOR UNKNOWN INDICATION
     Dosage: 20 TABLETS OF PARACETAMOL 500 MG (10,000 MG)
  3. HALOPERIDOL LACTATE. [Interacting]
     Active Substance: HALOPERIDOL LACTATE
     Route: 030
  4. NAPROXEN 275 MG [Interacting]
     Active Substance: NAPROXEN
     Indication: PRODUCT USED FOR UNKNOWN INDICATION
     Dosage: 20 TABLETS OF NAPROXEN 275 MG (5,500 MG)
  5. HALOPERIDOL LACTATE. [Interacting]
     Active Substance: HALOPERIDOL LACTATE
     Indication: AGITATION
     Route: 030

REACTIONS (7)
  - Oculogyric crisis [Recovered/Resolved]
  - Drug interaction [Recovered/Resolved]
  - Drug level increased [Recovered/Resolved]
  - Intentional overdose [Recovered/Resolved]
  - Dystonia [Recovered/Resolved]
  - Somnolence [Recovered/Resolved]
  - Torticollis [Recovered/Resolved]
